FAERS Safety Report 23841800 (Version 2)
Quarter: 2024Q3

REPORT INFORMATION
  Report Type: Spontaneous
  Country: US (occurrence: US)
  Receive Date: 20240510
  Receipt Date: 20240711
  Transmission Date: 20241017
  Serious: Yes (Hospitalization, Other)
  Sender: HIKMA
  Company Number: US-Hikma Pharmaceuticals USA Inc.-US-H14001-23-01358

PATIENT
  Age: 18 Year
  Sex: Female
  Weight: 151.1 kg

DRUGS (8)
  1. CYCLOPHOSPHAMIDE [Suspect]
     Active Substance: CYCLOPHOSPHAMIDE
     Indication: Acute lymphocytic leukaemia
     Dosage: 2500 MILLIGRAM
     Route: 042
     Dates: start: 20230320
  2. CYTARABINE [Suspect]
     Active Substance: CYTARABINE
     Indication: Acute lymphocytic leukaemia
     Dosage: 185 MILLIGRAM, Q8H
     Route: 042
     Dates: start: 20230320
  3. RUXOLITINIB [Suspect]
     Active Substance: RUXOLITINIB
     Indication: Acute lymphocytic leukaemia
     Dosage: 100 MILLIGRAM, BID
     Route: 048
     Dates: start: 20220908
  4. RUXOLITINIB [Suspect]
     Active Substance: RUXOLITINIB
     Dosage: 100 MILLIGRAM, BID
     Route: 048
     Dates: start: 20221212, end: 20221214
  5. RUXOLITINIB [Suspect]
     Active Substance: RUXOLITINIB
     Dosage: 100 MILLIGRAM, BID
     Route: 048
     Dates: start: 20230117, end: 20230120
  6. RUXOLITINIB [Suspect]
     Active Substance: RUXOLITINIB
     Dosage: 100 MILLIGRAM, BID
     Route: 048
     Dates: start: 20230216
  7. METHOTREXATE [Suspect]
     Active Substance: METHOTREXATE
     Indication: Acute lymphocytic leukaemia
     Dosage: 15 MILLIGRAM
     Route: 037
     Dates: start: 20230320
  8. THIOGUANINE [Suspect]
     Active Substance: THIOGUANINE
     Indication: Acute lymphocytic leukaemia
     Dosage: 140 MILLIGRAM
     Route: 048
     Dates: start: 20230320

REACTIONS (22)
  - Pain in extremity [Unknown]
  - Condition aggravated [Unknown]
  - Muscle strain [Not Recovered/Not Resolved]
  - Pelvic fluid collection [Unknown]
  - C-reactive protein increased [Unknown]
  - Joint effusion [Unknown]
  - Buttock injury [Unknown]
  - Skin disorder [Recovered/Resolved]
  - Hip fracture [Recovered/Resolved with Sequelae]
  - Femur fracture [Unknown]
  - Pathological fracture [Unknown]
  - Peripheral swelling [Unknown]
  - Haemoglobin decreased [Unknown]
  - White blood cell count decreased [Unknown]
  - Neutropenia [Unknown]
  - Groin abscess [Recovered/Resolved]
  - Pathogen resistance [Unknown]
  - Pyrexia [Unknown]
  - Arthritis bacterial [Recovered/Resolved]
  - Skin infection [Recovered/Resolved]
  - Enterococcal infection [Unknown]
  - Candida infection [Unknown]

NARRATIVE: CASE EVENT DATE: 20230327
